FAERS Safety Report 7758112-0 (Version None)
Quarter: 2011Q3

REPORT INFORMATION
  Report Type: 
  Country: None (occurrence: None)
  Receive Date: 20110919
  Receipt Date: 20110913
  Transmission Date: 20111222
  Serious: No
  Sender: FDA-Public Use
  Company Number: US-BIOGENIDEC-2011BI035304

PATIENT
  Age: 32 Year
  Sex: Male

DRUGS (1)
  1. TYSABRI [Suspect]
     Indication: MULTIPLE SCLEROSIS
     Route: 042
     Dates: start: 20110505

REACTIONS (5)
  - FEELING ABNORMAL [None]
  - ABDOMINAL DISCOMFORT [None]
  - ASTHENIA [None]
  - INFLUENZA LIKE ILLNESS [None]
  - HYPERHIDROSIS [None]
